FAERS Safety Report 8932494 (Version 1)
Quarter: 2012Q4

REPORT INFORMATION
  Report Type: Spontaneous
  Country: BA (occurrence: None)
  Receive Date: 20121120
  Receipt Date: 20121120
  Transmission Date: 20130627
  Serious: Yes (Hospitalization, Other)
  Sender: FDA-Public Use
  Company Number: FK201203358

PATIENT
  Age: 63 Year
  Sex: Female

DRUGS (2)
  1. HALOPERIDOL [Suspect]
     Indication: SCHIZOPHRENIA, PARANOID TYPE
  2. CLOZAPINE (CLOZAPINE) [Suspect]

REACTIONS (2)
  - Pulmonary embolism [None]
  - Hyperprolactinaemia [None]
